FAERS Safety Report 10787658 (Version 2)
Quarter: 2015Q2

REPORT INFORMATION
  Report Type: Spontaneous
  Country: JP (occurrence: JP)
  Receive Date: 20150212
  Receipt Date: 20150403
  Transmission Date: 20150821
  Serious: Yes (Other)
  Sender: FDA-Public Use
  Company Number: JP-ROCHE-1537258

PATIENT
  Age: 72 Year
  Sex: Female
  Weight: 43 kg

DRUGS (5)
  1. AVASTIN [Suspect]
     Active Substance: BEVACIZUMAB
     Indication: COLON CANCER METASTATIC
     Route: 041
     Dates: start: 20131127
  2. OXALIPLATIN. [Suspect]
     Active Substance: OXALIPLATIN
     Indication: COLON CANCER METASTATIC
     Route: 041
     Dates: start: 20131127, end: 20140129
  3. GIMERACIL\OTERACIL\TEGAFUR [Suspect]
     Active Substance: GIMERACIL\OTERACIL\TEGAFUR
     Indication: COLON CANCER METASTATIC
     Dosage: MOST RECENT DOSE ON 27/JAN/2015
     Route: 048
     Dates: start: 20131127
  4. OXALIPLATIN. [Suspect]
     Active Substance: OXALIPLATIN
     Indication: COLON CANCER METASTATIC
     Dosage: MOST RECENT DOSE RECEIVED ON 27/JAN/2015
     Route: 041
     Dates: start: 20140305
  5. LAC-B [Concomitant]
     Active Substance: BIFIDOBACTERIUM SPP.
     Route: 048

REACTIONS (1)
  - Interstitial lung disease [Unknown]

NARRATIVE: CASE EVENT DATE: 20150204
